FAERS Safety Report 4346915-4 (Version None)
Quarter: 2004Q1

REPORT INFORMATION
  Report Type: 
  Country: None (occurrence: None)
  Receive Date: 20040329
  Receipt Date: 20040209
  Transmission Date: 20041129
  Serious: No
  Sender: FDA-Public Use
  Company Number: USA040258884

PATIENT
  Sex: Female

DRUGS (2)
  1. STRATTERA [Suspect]
     Dosage: 120 MG/DAY
     Dates: start: 20031101
  2. TRIPHASIL-21 [Concomitant]

REACTIONS (2)
  - DIZZINESS [None]
  - PRESCRIBED OVERDOSE [None]
